FAERS Safety Report 19823604 (Version 3)
Quarter: 2021Q4

REPORT INFORMATION
  Report Type: Spontaneous
  Country: US (occurrence: US)
  Receive Date: 20210913
  Receipt Date: 20211117
  Transmission Date: 20220304
  Serious: Yes (Other)
  Sender: FDA-Public Use
  Company Number: US-PFIZER INC-202101139260

PATIENT
  Age: 61 Year
  Sex: Female
  Weight: 113.3 kg

DRUGS (17)
  1. IBRANCE [Suspect]
     Active Substance: PALBOCICLIB
     Indication: Breast cancer
     Dosage: 125 MG, CYCLIC(1 DIALY FOR 21DAYS)
     Route: 048
     Dates: start: 20210805
  2. IBRANCE [Suspect]
     Active Substance: PALBOCICLIB
     Dosage: 100 MG, CYCLIC (1 DAILY FOR 21 DAYS)
     Route: 048
  3. MIRALAX [Concomitant]
     Active Substance: POLYETHYLENE GLYCOL 3350
     Dosage: 17 G
  4. TRAZODONE [Concomitant]
     Active Substance: TRAZODONE HYDROCHLORIDE
     Dosage: 50 MG
  5. LORAZEPAM [Concomitant]
     Active Substance: LORAZEPAM
     Dosage: 0.5 MG
  6. POLYETHYLENE GLYCOL COMPOUND [Concomitant]
     Dosage: UNK
  7. PYRIDOXINE HYDROCHLORIDE [Concomitant]
     Active Substance: PYRIDOXINE HYDROCHLORIDE
     Dosage: 25 MG
  8. MINERALS\VITAMINS [Concomitant]
     Active Substance: MINERALS\VITAMINS
     Dosage: UNK
  9. XGEVA [Concomitant]
     Active Substance: DENOSUMAB
     Dosage: 120 MG(120 MG/1.7 VIAL)
  10. SENNA PLUS [SENNA ALEXANDRINA] [Concomitant]
     Dosage: 50 MG(8.6MG-50MG CAPSULE)
  11. OXYCODONE HYDROCHLORIDE [Concomitant]
     Active Substance: OXYCODONE HYDROCHLORIDE
     Dosage: 10 MG
  12. LETROZOLE [Concomitant]
     Active Substance: LETROZOLE
     Dosage: 2.5 MG
  13. TYLENOL [Concomitant]
     Active Substance: ACETAMINOPHEN
     Dosage: 325 MG
  14. CITALOPRAM [Concomitant]
     Active Substance: CITALOPRAM HYDROBROMIDE
     Dosage: 20 MG
  15. OMEPRAZOLE [Concomitant]
     Active Substance: OMEPRAZOLE
     Dosage: 20 MG
  16. ONDANSETRON HCL [Concomitant]
     Active Substance: ONDANSETRON HYDROCHLORIDE
     Dosage: 4 MG
  17. ELIQUIS [Concomitant]
     Active Substance: APIXABAN
     Dosage: 5 MG

REACTIONS (15)
  - Urinary tract infection [Unknown]
  - Oropharyngeal blistering [Recovered/Resolved]
  - Thrombosis [Unknown]
  - Laryngitis [Unknown]
  - Oral mucosal exfoliation [Unknown]
  - Paraesthesia oral [Unknown]
  - Back pain [Recovering/Resolving]
  - Hot flush [Recovering/Resolving]
  - Headache [Unknown]
  - Malaise [Unknown]
  - Illness [Unknown]
  - Mobility decreased [Unknown]
  - Dysstasia [Unknown]
  - Dyspnoea [Unknown]
  - Pain in extremity [Unknown]
